FAERS Safety Report 11470639 (Version 2)
Quarter: 2015Q3

REPORT INFORMATION
  Report Type: Spontaneous
  Country: US (occurrence: US)
  Receive Date: 20150903
  Receipt Date: 20150903
  Transmission Date: 20151125
  Serious: No
  Sender: FDA-Public Use
  Company Number: US-ELI_LILLY_AND_COMPANY-US201112003212

PATIENT
  Sex: Female

DRUGS (1)
  1. CYMBALTA [Suspect]
     Active Substance: DULOXETINE HYDROCHLORIDE
     Indication: MAJOR DEPRESSION
     Dosage: 60 MG, UNKNOWN
     Dates: end: 20111203

REACTIONS (12)
  - Lethargy [Unknown]
  - Impatience [Unknown]
  - Gastric disorder [Unknown]
  - Drug ineffective [Unknown]
  - Paraesthesia [Unknown]
  - Irritability [Unknown]
  - Nausea [Unknown]
  - Urinary hesitation [Recovering/Resolving]
  - Insomnia [Unknown]
  - Agitation [Unknown]
  - Depression [Unknown]
  - Drug withdrawal syndrome [Unknown]
